FAERS Safety Report 5022156-2 (Version None)
Quarter: 2006Q2

REPORT INFORMATION
  Report Type: 
  Country: None (occurrence: None)
  Receive Date: 20060609
  Receipt Date: 20060426
  Transmission Date: 20061013
  Serious: Yes (Other)
  Sender: FDA-Public Use
  Company Number: 2006SE02413

PATIENT
  Age: 64 Year
  Sex: Male

DRUGS (7)
  1. SEROQUEL [Interacting]
     Indication: BIPOLAR DISORDER
     Route: 048
     Dates: start: 20060320
  2. SEROQUEL [Interacting]
     Route: 048
  3. CYMBALTA [Interacting]
     Indication: BIPOLAR DISORDER
     Route: 048
     Dates: start: 20060411
  4. CYMBALTA [Interacting]
     Route: 048
  5. ATARAX [Suspect]
     Indication: ANXIETY
     Dosage: 25 MG UP TO THREE TIMES A DAY
     Route: 048
  6. VALLERGAN [Suspect]
     Indication: ANXIETY
  7. LAMOTRIGINE [Concomitant]
     Dosage: 25 MG, DOSE TO BE INCREASED TO 200 MG GRADUALLY OVER SIX WEEKS
     Route: 048

REACTIONS (3)
  - DEPRESSION [None]
  - DRUG INTERACTION [None]
  - DYSKINESIA [None]
